FAERS Safety Report 7309053-4 (Version None)
Quarter: 2011Q1

REPORT INFORMATION
  Report Type: 
  Country: None (occurrence: None)
  Receive Date: 20110223
  Receipt Date: 20110215
  Transmission Date: 20110831
  Serious: Yes (Other)
  Sender: FDA-Public Use
  Company Number: US-PFIZER INC-2011004969

PATIENT
  Sex: Female
  Weight: 50.79 kg

DRUGS (11)
  1. LYRICA [Suspect]
     Indication: NEUROPATHY PERIPHERAL
     Dosage: UNK
     Dates: end: 20090101
  2. XANAX [Suspect]
     Dosage: UNK
     Dates: end: 20090101
  3. AMBIEN [Concomitant]
     Dosage: 10 MG
  4. VALIUM [Concomitant]
     Dosage: 10 MG
  5. EFFEXOR [Concomitant]
     Dosage: 75 MG
  6. GABITRIL [Concomitant]
     Dosage: 12 MG
  7. ZOLOFT [Suspect]
     Dosage: UNK
     Dates: end: 20090101
  8. HYDROCHLOROTHIAZIDE [Concomitant]
     Dosage: 25 MG
  9. NEURONTIN [Concomitant]
     Dosage: 400 MG
  10. LYRICA [Suspect]
     Indication: FIBROMYALGIA
  11. CELEBREX [Suspect]
     Dosage: UNK
     Dates: end: 20090101

REACTIONS (7)
  - IMMOBILE [None]
  - INTERVERTEBRAL DISC DEGENERATION [None]
  - DEMENTIA ALZHEIMER'S TYPE [None]
  - INTERVERTEBRAL DISC PROTRUSION [None]
  - EXOSTOSIS [None]
  - CARPAL TUNNEL SYNDROME [None]
  - VENTRICULAR EXTRASYSTOLES [None]
